FAERS Safety Report 10044422 (Version 1)
Quarter: 2014Q1

REPORT INFORMATION
  Report Type: Spontaneous
  Country: US (occurrence: None)
  Receive Date: 20140306
  Receipt Date: 20140306
  Transmission Date: 20141002
  Serious: Yes (Other)
  Sender: FDA-Public Use
  Company Number: 163-21880-13070328

PATIENT
  Age: 69 Year
  Sex: Female

DRUGS (10)
  1. REVLIMID [Suspect]
     Indication: PLASMA CELL MYELOMA
     Dosage: 25MG, 21 IN 28 D, PO
     Route: 048
     Dates: start: 20130108
  2. DEXAMETHASONE [Concomitant]
  3. PROCHLORPERAZINE (PROCHLORPERAZINE) [Concomitant]
  4. CLOTRIMAZOLE-BETAMETHASONE (CLOTRASON) [Concomitant]
  5. VENTOLIN HFA (SALBUTAMOL SULFATE) (INHALANT) [Concomitant]
  6. ADVAIR DISKUS [Concomitant]
  7. MORPHINE SULFATE (MORPHINE SULFATE) [Concomitant]
  8. SPIRIVA (TIOTROPIUM BROMIDE) (INHALANT) [Concomitant]
  9. FUROSEMIDE [Concomitant]
  10. SPIRONOLACTONE [Concomitant]

REACTIONS (3)
  - Thrombosis [None]
  - Pulmonary embolism [None]
  - Rash [None]
